FAERS Safety Report 23348975 (Version 1)
Quarter: 2023Q4

REPORT INFORMATION
  Report Type: Other
  Country: US (occurrence: None)
  Receive Date: 20231229
  Receipt Date: 20231229
  Transmission Date: 20240109
  Serious: Yes (Death)
  Sender: FDA-Public Use
  Company Number: US-ROCHE-3480737

PATIENT
  Age: 61 Year
  Sex: Male

DRUGS (1)
  1. OCREVUS [Suspect]
     Active Substance: OCRELIZUMAB
     Indication: Relapsing multiple sclerosis
     Dosage: DATE OF TREATMENT: 15/JAN/2022?LAST OCREVUS INFUSIONS, WHICH WERE ON 31/JUL/2023 AND /JAN/2023.
     Route: 042

REACTIONS (4)
  - Pneumonia [Fatal]
  - Renal failure [Fatal]
  - Hepatic failure [Fatal]
  - COVID-19 [Fatal]
